FAERS Safety Report 7020953-5 (Version None)
Quarter: 2010Q3

REPORT INFORMATION
  Report Type: 
  Country: None (occurrence: None)
  Receive Date: 20100929
  Receipt Date: 20091007
  Transmission Date: 20110219
  Serious: No
  Sender: FDA-Public Use
  Company Number: A0805695A

PATIENT
  Age: 13 Year
  Sex: Male

DRUGS (2)
  1. RELENZA [Suspect]
     Dosage: 1PUFF SINGLE DOSE
     Route: 055
     Dates: start: 20090901, end: 20090901
  2. MOTRIN [Concomitant]

REACTIONS (1)
  - CHEST PAIN [None]
